FAERS Safety Report 6379095-4 (Version None)
Quarter: 2009Q3

REPORT INFORMATION
  Report Type: 
  Country: None (occurrence: None)
  Receive Date: 20090923
  Receipt Date: 20090923
  Transmission Date: 20100115
  Serious: Yes (Life-Threatening)
  Sender: FDA-Public Use
  Company Number: None

PATIENT
  Age: 48 Year
  Sex: Male
  Weight: 80 kg

DRUGS (7)
  1. HYDROMORPHONE [Suspect]
     Indication: PAIN
     Dosage: 3MG IV TOTAL
     Route: 042
     Dates: start: 20090611
  2. ATOVAQUONE [Concomitant]
  3. PEPTO BISMOL [Concomitant]
  4. LANSOPRAZOLE [Concomitant]
  5. LOPERAMIDE [Concomitant]
  6. LORAZEPAM [Concomitant]
  7. PREDNISONE [Concomitant]

REACTIONS (10)
  - BLOOD LACTIC ACID INCREASED [None]
  - DRUG ERUPTION [None]
  - DYSPHAGIA [None]
  - HYPERCAPNIA [None]
  - LETHARGY [None]
  - PAIN [None]
  - PYREXIA [None]
  - RESPIRATORY RATE DECREASED [None]
  - STAPHYLOCOCCAL BACTERAEMIA [None]
  - WHITE BLOOD CELL COUNT INCREASED [None]
